FAERS Safety Report 5334673-6 (Version None)
Quarter: 2007Q2

REPORT INFORMATION
  Report Type: 
  Country: None (occurrence: None)
  Receive Date: 20070525
  Receipt Date: 20070510
  Transmission Date: 20071010
  Serious: Yes (Hospitalization)
  Sender: FDA-Public Use
  Company Number: D0052796A

PATIENT
  Age: 38 Year
  Sex: Female
  Weight: 59 kg

DRUGS (3)
  1. LAMICTAL [Suspect]
     Route: 048
  2. OXAZEPAM [Suspect]
     Dosage: 80MG PER DAY
     Route: 048
  3. TRUXAL [Suspect]
     Route: 065

REACTIONS (2)
  - INTENTIONAL DRUG MISUSE [None]
  - SOMNOLENCE [None]
